FAERS Safety Report 13577239 (Version 1)
Quarter: 2017Q2

REPORT INFORMATION
  Report Type: Spontaneous
  Country: US (occurrence: US)
  Receive Date: 20170524
  Receipt Date: 20170524
  Transmission Date: 20170830
  Serious: No
  Sender: FDA-Public Use
  Company Number: US-PFIZER INC-2017227990

PATIENT
  Age: 14 Year
  Sex: Male

DRUGS (3)
  1. ALCOHOL PREP PAD [Concomitant]
     Active Substance: ISOPROPYL ALCOHOL
     Dosage: UNK 6 TIMES WEEKLY
  2. GENOTROPIN [Suspect]
     Active Substance: SOMATROPIN
     Dosage: 1.8 MG, UNK [6 TIMES PER WEEK AS DIRECTED]
  3. GENOTROPIN [Suspect]
     Active Substance: SOMATROPIN
     Indication: GROWTH HORMONE DEFICIENCY
     Dosage: 2 MG, UNK  [SIX DAYS PER WEEK]
     Dates: start: 2005

REACTIONS (2)
  - Scoliosis [Unknown]
  - Drug dose omission [Unknown]
